FAERS Safety Report 8791547 (Version 1)
Quarter: 2012Q4

REPORT INFORMATION
  Report Type: Spontaneous
  Country: KR (occurrence: None)
  Receive Date: 20120912
  Receipt Date: 20120912
  Transmission Date: 20130627
  Serious: Yes (Disabling, Other)
  Sender: FDA-Public Use
  Company Number: 2012MA010700

PATIENT
  Age: 73 Year
  Sex: Female

DRUGS (1)
  1. TRIAMCINOLONE ACETONIDE [Suspect]
     Indication: DIABETIC MACULAR EDEMA
     Dates: start: 200807

REACTIONS (1)
  - Cytomegalovirus chorioretinitis [None]
